FAERS Safety Report 4848300-5 (Version None)
Quarter: 2005Q4

REPORT INFORMATION
  Report Type: 
  Country: None (occurrence: None)
  Receive Date: 20051206
  Receipt Date: 20051201
  Transmission Date: 20060501
  Serious: Yes (Death, Life-Threatening, Hospitalization)
  Sender: FDA-Public Use
  Company Number: OXYA20050006

PATIENT
  Age: 53 Year
  Sex: Female

DRUGS (1)
  1. OXYCODONE / APAP [Suspect]
     Indication: BACK PAIN
     Dosage: PO
     Route: 048
     Dates: start: 20040101, end: 20040101

REACTIONS (6)
  - DEPRESSED LEVEL OF CONSCIOUSNESS [None]
  - ENCEPHALOPATHY [None]
  - GENERAL PHYSICAL HEALTH DETERIORATION [None]
  - HEPATIC FAILURE [None]
  - METABOLIC ACIDOSIS [None]
  - OVERDOSE [None]
